FAERS Safety Report 4876483-X (Version None)
Quarter: 2006Q1

REPORT INFORMATION
  Report Type: 
  Country: None (occurrence: None)
  Receive Date: 20060106
  Receipt Date: 20051228
  Transmission Date: 20060701
  Serious: Yes (Life-Threatening, Other)
  Sender: FDA-Public Use
  Company Number: 001#3#2005-02230

PATIENT
  Sex: Female

DRUGS (2)
  1. AMINEURIN 10 (AMITRIPTYLINE HYDROCHLORIDE) [Suspect]
     Indication: SOMATISATION DISORDER
     Dosage: 10 MILLIGRAM
     Dates: start: 20050801, end: 20051001
  2. NEURONTIN [Suspect]
     Indication: SOMATISATION DISORDER
     Dates: start: 20050801, end: 20051001

REACTIONS (3)
  - HEPATOCELLULAR DAMAGE [None]
  - HEPATOTOXICITY [None]
  - HYPERSENSITIVITY [None]
